FAERS Safety Report 6382415-8 (Version None)
Quarter: 2009Q3

REPORT INFORMATION
  Report Type: 
  Country: None (occurrence: None)
  Receive Date: 20090930
  Receipt Date: 20090925
  Transmission Date: 20100115
  Serious: Yes (Other)
  Sender: FDA-Public Use
  Company Number: CHPA2009US19253

PATIENT
  Sex: Female

DRUGS (1)
  1. VOLTAREN [Suspect]
     Dosage: UNK
     Route: 061
     Dates: start: 20090913

REACTIONS (5)
  - APPLICATION SITE BURN [None]
  - APPLICATION SITE VESICLES [None]
  - BLISTER [None]
  - BURNS SECOND DEGREE [None]
  - WRONG TECHNIQUE IN DRUG USAGE PROCESS [None]
